FAERS Safety Report 23557887 (Version 1)
Quarter: 2024Q1

REPORT INFORMATION
  Report Type: Spontaneous
  Country: US (occurrence: US)
  Receive Date: 20240223
  Receipt Date: 20240223
  Transmission Date: 20240410
  Serious: No
  Sender: FDA-Public Use
  Company Number: US-AstraZeneca-CH-00567467A

PATIENT
  Sex: Female

DRUGS (1)
  1. SOLIRIS [Suspect]
     Active Substance: ECULIZUMAB
     Indication: Myasthenia gravis
     Dosage: UNK
     Route: 065

REACTIONS (7)
  - Product dose omission issue [Unknown]
  - Mastication disorder [Unknown]
  - Dysphagia [Unknown]
  - Weight decreased [Unknown]
  - Productive cough [Unknown]
  - Fatigue [Unknown]
  - Asthenia [Unknown]
